FAERS Safety Report 8603869-X (Version None)
Quarter: 2012Q3

REPORT INFORMATION
  Report Type: 
  Country: None (occurrence: None)
  Receive Date: 20120818
  Receipt Date: 20120809
  Transmission Date: 20120928
  Serious: Yes (Death)
  Sender: FDA-Public Use
  Company Number: JP-BAXTER-2012BAX011076

PATIENT
  Sex: Male

DRUGS (28)
  1. PIRFENIDONE [Suspect]
     Dosage: 400 MG/AM, 400 MG/PM, 600 MG NIGHT
     Route: 048
     Dates: start: 20091214, end: 20100707
  2. NEORAL [Concomitant]
     Indication: IDIOPATHIC PULMONARY FIBROSIS
     Route: 048
     Dates: start: 20100420, end: 20100424
  3. CYCLOPHOSPHAMIDE [Suspect]
     Route: 048
     Dates: start: 20090525, end: 20111015
  4. PIRFENIDONE [Suspect]
     Dosage: 600 MG/AM, 600 MG/PM, 400 MG NIGHT
     Route: 048
     Dates: start: 20100707, end: 20111011
  5. MUCODYNE [Suspect]
     Indication: IDIOPATHIC PULMONARY FIBROSIS
     Route: 048
     Dates: start: 20070417, end: 20111015
  6. FLOMOX [Concomitant]
     Route: 048
     Dates: start: 20100301, end: 20100304
  7. CYCLOPHOSPHAMIDE [Suspect]
     Indication: IDIOPATHIC PULMONARY FIBROSIS
     Route: 048
     Dates: start: 20061222, end: 20070319
  8. CYCLOPHOSPHAMIDE [Suspect]
     Route: 048
     Dates: start: 20080818, end: 20090524
  9. ASPIRIN [Suspect]
     Route: 048
     Dates: start: 20061222, end: 20111015
  10. ACTONEL [Suspect]
     Route: 048
     Dates: start: 20090526, end: 20111015
  11. MICONAZOLE [Concomitant]
     Indication: ORAL CANDIDIASIS
     Route: 048
     Dates: start: 20100308, end: 20120315
  12. GENTAMICIN SULFATE [Concomitant]
     Route: 061
     Dates: start: 20100301, end: 20100304
  13. CYCLOPHOSPHAMIDE [Suspect]
     Route: 048
     Dates: start: 20070320, end: 20080817
  14. PIRFENIDONE [Suspect]
     Dosage: 200 MG/AM, 200 MG/PM, 400 MG NIGHT
     Route: 048
     Dates: start: 20091130, end: 20091214
  15. POVIDONE IODINE [Suspect]
     Route: 065
     Dates: start: 20090527, end: 20111015
  16. VALTREX [Concomitant]
     Route: 048
     Dates: start: 20100307, end: 20100312
  17. PIRFENIDONE [Suspect]
     Indication: IDIOPATHIC PULMONARY FIBROSIS
     Route: 048
     Dates: start: 20091116, end: 20091130
  18. PREDNISOLONE [Suspect]
     Indication: IDIOPATHIC PULMONARY FIBROSIS
     Route: 048
     Dates: start: 20061222, end: 20111012
  19. PREDNISOLONE [Suspect]
  20. SULFAMETHOXAZOLE AND TRIMETHOPRIM [Suspect]
     Route: 048
     Dates: start: 20070321, end: 20111015
  21. ZOLPIDEM [Suspect]
     Route: 048
     Dates: start: 20070123, end: 20111015
  22. PROPETO [Concomitant]
     Route: 061
     Dates: start: 20100304, end: 20100317
  23. NEORAL [Concomitant]
     Route: 048
     Dates: start: 20100425, end: 20111011
  24. ARASENA-A [Concomitant]
     Route: 061
     Dates: start: 20091214, end: 20100329
  25. OLOPATADINE HCL [Concomitant]
     Route: 048
     Dates: start: 20100301, end: 20100317
  26. MUCOSOLVAN [Suspect]
     Indication: IDIOPATHIC PULMONARY FIBROSIS
     Route: 048
     Dates: start: 20071023, end: 20111015
  27. HIBIDIL [Concomitant]
     Route: 061
     Dates: start: 20100301, end: 20100304
  28. MYSER [Concomitant]
     Route: 065

REACTIONS (5)
  - ORAL HERPES [None]
  - ORAL CANDIDIASIS [None]
  - DECREASED APPETITE [None]
  - DRUG ERUPTION [None]
  - PNEUMONIA [None]
